FAERS Safety Report 23609251 (Version 13)
Quarter: 2025Q1

REPORT INFORMATION
  Report Type: Report from Study
  Country: US (occurrence: US)
  Receive Date: 20240308
  Receipt Date: 20250110
  Transmission Date: 20250409
  Serious: Yes (Life-Threatening, Hospitalization, Disabling, Other)
  Sender: TAKEDA
  Company Number: US-TAKEDA-2023TUS113096

PATIENT
  Sex: Female
  Weight: 63 kg

DRUGS (71)
  1. TEDUGLUTIDE [Suspect]
     Active Substance: TEDUGLUTIDE
     Indication: Hepatotoxicity
     Dosage: 0.3 MILLILITER, QD
  2. TEDUGLUTIDE [Suspect]
     Active Substance: TEDUGLUTIDE
     Indication: Hepatitis acute
     Dosage: 0.3 MILLILITER, QD
  3. TEDUGLUTIDE [Suspect]
     Active Substance: TEDUGLUTIDE
     Indication: Short-bowel syndrome
     Dosage: 0.3 MILLILITER, QD
  4. TEDUGLUTIDE [Suspect]
     Active Substance: TEDUGLUTIDE
     Dosage: 0.3 MILLILITER, QD
  5. TEDUGLUTIDE [Suspect]
     Active Substance: TEDUGLUTIDE
     Dosage: 0.3 MILLILITER, QD
  6. TEDUGLUTIDE [Suspect]
     Active Substance: TEDUGLUTIDE
     Dosage: 0.3 MILLILITER, QD
  7. TEDUGLUTIDE [Suspect]
     Active Substance: TEDUGLUTIDE
     Dosage: 0.3 MILLILITER, QD
  8. TEDUGLUTIDE [Suspect]
     Active Substance: TEDUGLUTIDE
     Dosage: 0.3 MILLILITER, QD
  9. TEDUGLUTIDE [Suspect]
     Active Substance: TEDUGLUTIDE
     Dosage: 0.3 MILLILITER, QD
  10. TEDUGLUTIDE [Suspect]
     Active Substance: TEDUGLUTIDE
     Dosage: 0.3 MILLILITER, QD
  11. TEDUGLUTIDE [Suspect]
     Active Substance: TEDUGLUTIDE
     Dosage: 3 MILLIGRAM, QD
  12. TEDUGLUTIDE [Suspect]
     Active Substance: TEDUGLUTIDE
     Dosage: 0.3 MILLILITER, QD
  13. TEDUGLUTIDE [Suspect]
     Active Substance: TEDUGLUTIDE
     Dosage: 0.3 MILLILITER, QD
     Dates: end: 20241204
  14. TEDUGLUTIDE [Suspect]
     Active Substance: TEDUGLUTIDE
     Dosage: 3 MILLIGRAM, QD
  15. TPN [Suspect]
     Active Substance: AMINO ACIDS\DEXTROSE\ELECTROLYTES NOS\SOYBEAN OIL
     Indication: Product used for unknown indication
  16. AMLODIPINE BESYLATE [Concomitant]
     Active Substance: AMLODIPINE BESYLATE
  17. BUDESONIDE [Concomitant]
     Active Substance: BUDESONIDE
  18. FAMOTIDINE [Concomitant]
     Active Substance: FAMOTIDINE
     Dosage: UNK UNK, QD
  19. PROTONIX [Concomitant]
     Active Substance: PANTOPRAZOLE SODIUM
  20. FLUTICASONE PROPIONATE [Concomitant]
     Active Substance: FLUTICASONE PROPIONATE
  21. OMEPRAZOLE MAGNESIUM [Concomitant]
     Active Substance: OMEPRAZOLE MAGNESIUM
  22. BUDESONIDE\FORMOTEROL FUMARATE [Concomitant]
     Active Substance: BUDESONIDE\FORMOTEROL FUMARATE
  23. SODIUM CHLORIDE [Concomitant]
     Active Substance: SODIUM CHLORIDE
  24. ALBUTEROL SULFATE [Concomitant]
     Active Substance: ALBUTEROL SULFATE
  25. ALBUTEROL SULFATE [Concomitant]
     Active Substance: ALBUTEROL SULFATE
     Dosage: UNK UNK, TID
     Dates: start: 20230517
  26. FERROUS SULFATE [Concomitant]
     Active Substance: FERROUS SULFATE
     Dosage: 325 MILLIGRAM, BID
  27. ACETAMINOPHEN [Concomitant]
     Active Substance: ACETAMINOPHEN
  28. ONDANSETRON [Concomitant]
     Active Substance: ONDANSETRON
  29. ALPRAZOLAM [Concomitant]
     Active Substance: ALPRAZOLAM
     Indication: Anxiety
  30. ALPRAZOLAM [Concomitant]
     Active Substance: ALPRAZOLAM
     Dosage: 3 MILLIGRAM, QD
  31. ALPRAZOLAM [Concomitant]
     Active Substance: ALPRAZOLAM
     Dosage: UNK, TID
  32. LANSOPRAZOLE [Concomitant]
     Active Substance: LANSOPRAZOLE
  33. SPIRIVA RESPIMAT [Concomitant]
     Active Substance: TIOTROPIUM BROMIDE
  34. SUCRALFATE [Concomitant]
     Active Substance: SUCRALFATE
  35. LEVOTHYROXINE SODIUM [Concomitant]
     Active Substance: LEVOTHYROXINE SODIUM
  36. POTASSIUM CHLORIDE [Concomitant]
     Active Substance: POTASSIUM CHLORIDE
     Dosage: UNK UNK, QD
     Dates: start: 20230417
  37. ARIPIPRAZOLE [Concomitant]
     Active Substance: ARIPIPRAZOLE
  38. CYANOCOBALAMIN [Concomitant]
     Active Substance: CYANOCOBALAMIN
  39. MONTELUKAST SODIUM [Concomitant]
     Active Substance: MONTELUKAST SODIUM
  40. NALOXONE HCL [Concomitant]
     Active Substance: NALOXONE HYDROCHLORIDE
  41. LACTATED RINGERS SOLUTION [Concomitant]
     Active Substance: CALCIUM CHLORIDE\POTASSIUM CHLORIDE\SODIUM CHLORIDE\SODIUM LACTATE
  42. ERYTHROMYCIN [Concomitant]
     Active Substance: ERYTHROMYCIN
  43. CHOLESTYRAMINE [Concomitant]
     Active Substance: CHOLESTYRAMINE
     Dosage: UNK UNK, BID
     Dates: start: 20240619
  44. CARISOPRODOL [Concomitant]
     Active Substance: CARISOPRODOL
  45. SYMBICORT [Concomitant]
     Active Substance: BUDESONIDE\FORMOTEROL FUMARATE DIHYDRATE
  46. SYMBICORT [Concomitant]
     Active Substance: BUDESONIDE\FORMOTEROL FUMARATE DIHYDRATE
     Dosage: UNK, QID
     Dates: start: 20230517
  47. SERTRALINE HYDROCHLORIDE [Concomitant]
     Active Substance: SERTRALINE HYDROCHLORIDE
  48. QUETIAPINE FUMARATE [Concomitant]
     Active Substance: QUETIAPINE FUMARATE
  49. PROMETHAZINE HYDROCHLORIDE [Concomitant]
     Active Substance: PROMETHAZINE HYDROCHLORIDE
  50. LYRICA [Concomitant]
     Active Substance: PREGABALIN
     Dosage: UNK UNK, BID
     Dates: start: 20230517
  51. ALBUTEROL SULFATE [Concomitant]
     Active Substance: ALBUTEROL SULFATE
     Dosage: 3 MILLILITER, QID
     Dates: start: 20230517
  52. CARAFATE [Concomitant]
     Active Substance: SUCRALFATE
     Dosage: 1 GRAM, BID
     Dates: start: 20240305
  53. ERGOCALCIFEROL [Concomitant]
     Active Substance: ERGOCALCIFEROL
     Dosage: UNK UNK, 1/WEEK
  54. FERROUS SULFATE [Concomitant]
     Active Substance: FERROUS SULFATE
     Dosage: 1 DOSAGE FORM, BID
  55. LAMOTRIGINE [Concomitant]
     Active Substance: LAMOTRIGINE
     Dosage: UNK, QD
  56. LEVOTHYROXINE [Concomitant]
     Active Substance: LEVOTHYROXINE
     Dosage: UNK UNK, QD
     Dates: start: 20230517
  57. LISINOPRIL [Concomitant]
     Active Substance: LISINOPRIL
     Dosage: UNK UNK, QD
     Dates: start: 20230517
  58. LOMOTIL [Concomitant]
     Active Substance: ATROPINE SULFATE\DIPHENOXYLATE HYDROCHLORIDE
  59. MONTELUKAST [Concomitant]
     Active Substance: MONTELUKAST
     Dosage: UNK UNK, QD
  60. NALOXONE [Concomitant]
     Active Substance: NALOXONE
  61. NITROGLYCERIN [Concomitant]
     Active Substance: NITROGLYCERIN
     Indication: Chest pain
  62. NURTEC ODT [Concomitant]
     Active Substance: RIMEGEPANT SULFATE
     Indication: Migraine
     Dosage: UNK UNK, QD
     Dates: start: 20230517
  63. OMEPRAZOLE [Concomitant]
     Active Substance: OMEPRAZOLE
     Dosage: 1 DOSAGE FORM, QD
     Dates: start: 20221122
  64. PROMETHAZINE [Concomitant]
     Active Substance: PROMETHAZINE HYDROCHLORIDE
  65. QUETIAPINE [Concomitant]
     Active Substance: QUETIAPINE
     Dosage: UNK UNK, QD
  66. SERTRALINE [Concomitant]
     Active Substance: SERTRALINE HYDROCHLORIDE
     Dosage: UNK UNK, QD
     Dates: start: 20240619
  67. TIOTROPIUM BROMIDE [Concomitant]
     Active Substance: TIOTROPIUM BROMIDE
     Dosage: UNK UNK, QD
     Dates: start: 20230517
  68. TIZANIDINE [Concomitant]
     Active Substance: TIZANIDINE
     Dosage: UNK UNK, QD
     Dates: start: 20240619
  69. MIRTAZAPINE [Concomitant]
     Active Substance: MIRTAZAPINE
  70. LORAZEPAM [Concomitant]
     Active Substance: LORAZEPAM
  71. PROAIR HFA [Concomitant]
     Active Substance: ALBUTEROL SULFATE

REACTIONS (36)
  - Near death experience [Recovered/Resolved]
  - Lung disorder [Not Recovered/Not Resolved]
  - Septic shock [Recovered/Resolved]
  - Bacterial infection [Unknown]
  - Thrombosis [Unknown]
  - Gastric infection [Recovered/Resolved]
  - Spinal cord infection [Recovered/Resolved]
  - Infection [Recovering/Resolving]
  - Pneumonia bacterial [Recovering/Resolving]
  - COVID-19 [Recovered/Resolved]
  - Spinal disorder [Recovered/Resolved]
  - Mobility decreased [Recovered/Resolved]
  - Oedema [Recovered/Resolved]
  - Influenza [Recovered/Resolved with Sequelae]
  - Dyspnoea [Recovering/Resolving]
  - Illness [Unknown]
  - Asthenia [Unknown]
  - Pancreatic disorder [Unknown]
  - Weight increased [Recovering/Resolving]
  - Swelling [Not Recovered/Not Resolved]
  - Night sweats [Not Recovered/Not Resolved]
  - Stoma complication [Recovered/Resolved]
  - Increased appetite [Recovering/Resolving]
  - Memory impairment [Unknown]
  - Hyperphagia [Recovering/Resolving]
  - Weight fluctuation [Not Recovered/Not Resolved]
  - Gastrointestinal stoma output increased [Recovering/Resolving]
  - Abdominal distension [Recovering/Resolving]
  - Cardiac disorder [Unknown]
  - Off label use [Unknown]
  - Periarthritis [Unknown]
  - Bedridden [Recovering/Resolving]
  - Fatigue [Not Recovered/Not Resolved]
  - Skin disorder [Unknown]
  - Hernia [Unknown]
  - Nausea [Recovering/Resolving]

NARRATIVE: CASE EVENT DATE: 20200101
